FAERS Safety Report 17724997 (Version 2)
Quarter: 2020Q2

REPORT INFORMATION
  Report Type: Spontaneous
  Country: US (occurrence: US)
  Receive Date: 20200429
  Receipt Date: 20200618
  Transmission Date: 20200714
  Serious: Yes (Other)
  Sender: FDA-Public Use
  Company Number: US-TEVA-2020-US-1228671

PATIENT
  Sex: Female

DRUGS (1)
  1. VALSARTAN W/HYDROCHLOROTHIAZIDE [Suspect]
     Active Substance: HYDROCHLOROTHIAZIDE\VALSARTAN
     Dosage: 160/125 MG
     Route: 065
     Dates: start: 2012, end: 2018

REACTIONS (7)
  - Gastric cancer [Unknown]
  - Hepatic cancer [Unknown]
  - Pancreatic carcinoma [Unknown]
  - Renal cancer [Unknown]
  - Small intestine carcinoma [Unknown]
  - Oesophageal carcinoma [Unknown]
  - Colorectal cancer [Unknown]
